FAERS Safety Report 7532655-7 (Version None)
Quarter: 2011Q2

REPORT INFORMATION
  Report Type: 
  Country: None (occurrence: None)
  Receive Date: 20110608
  Receipt Date: 20110531
  Transmission Date: 20111010
  Serious: Yes (Death, Hospitalization)
  Sender: FDA-Public Use
  Company Number: Z0008997A

PATIENT
  Sex: Male
  Weight: 53 kg

DRUGS (2)
  1. OFATUMUMAB [Suspect]
     Indication: CHRONIC LYMPHOCYTIC LEUKAEMIA
     Route: 042
     Dates: start: 20110215, end: 20110316
  2. CHLORAMBUCIL [Suspect]
     Indication: CHRONIC LYMPHOCYTIC LEUKAEMIA
     Route: 048
     Dates: start: 20110215

REACTIONS (3)
  - MUCOSAL INFLAMMATION [None]
  - BLOOD PRESSURE DIASTOLIC DECREASED [None]
  - AGRANULOCYTOSIS [None]
